FAERS Safety Report 12997020 (Version 1)
Quarter: 2016Q4

REPORT INFORMATION
  Report Type: Report from Study
  Country: CA (occurrence: CA)
  Receive Date: 20161205
  Receipt Date: 20161205
  Transmission Date: 20170207
  Serious: Yes (Other)
  Sender: FDA-Public Use
  Company Number: CA-BIOGEN-2016BI00304189

PATIENT
  Age: 37 Year
  Sex: Female

DRUGS (3)
  1. TYSABRI [Suspect]
     Active Substance: NATALIZUMAB
     Dosage: REASON FOR STOPPING TX : PREGNANCY
     Route: 042
     Dates: start: 20160720, end: 20160914
  2. TYSABRI [Suspect]
     Active Substance: NATALIZUMAB
     Dosage: REASON FOR STOPPING TX : PREGNANCY
     Route: 042
     Dates: start: 20150819, end: 20160406
  3. TYSABRI [Suspect]
     Active Substance: NATALIZUMAB
     Indication: MULTIPLE SCLEROSIS
     Dosage: REASON FOR STOPPING TX : PREGNANCY
     Route: 042
     Dates: start: 20150216, end: 20150708

REACTIONS (2)
  - Abortion spontaneous [Recovered/Resolved]
  - Maternal exposure during pregnancy [Recovered/Resolved]

NARRATIVE: CASE EVENT DATE: 20161123
